FAERS Safety Report 13464995 (Version 1)
Quarter: 2017Q2

REPORT INFORMATION
  Report Type: Spontaneous
  Country: US (occurrence: US)
  Receive Date: 20170421
  Receipt Date: 20170421
  Transmission Date: 20170830
  Serious: No
  Sender: FDA-Public Use
  Company Number: US-BAUSCH-BL-2017-000507

PATIENT
  Age: 70 Year
  Sex: Female

DRUGS (2)
  1. ACETIC ACID 2% IN AQUEOUS ALUMINUM ACETATE OTIC SOLUTION [Suspect]
     Active Substance: ACETIC ACID
     Dosage: 15 TO 20 DROPS FOR EACH DOSE
     Route: 001
     Dates: start: 20170104
  2. ACETIC ACID 2% IN AQUEOUS ALUMINUM ACETATE OTIC SOLUTION [Suspect]
     Active Substance: ACETIC ACID
     Indication: OTITIS EXTERNA
     Dosage: 5 DROPS INTO THE RIGHT EAR EVERY 2 TO 3 HOURS
     Route: 001
     Dates: start: 20170104

REACTIONS (4)
  - Off label use [Unknown]
  - No adverse event [Unknown]
  - Intentional overdose [Unknown]
  - Product container issue [Unknown]

NARRATIVE: CASE EVENT DATE: 20170104
